FAERS Safety Report 9748339 (Version 2)
Quarter: 2013Q4

REPORT INFORMATION
  Report Type: Spontaneous
  Country: ES (occurrence: ES)
  Receive Date: 20131212
  Receipt Date: 20131227
  Transmission Date: 20140711
  Serious: Yes (Other)
  Sender: FDA-Public Use
  Company Number: ES-BAYER-2013-148709

PATIENT
  Age: 48 Year
  Sex: Female

DRUGS (2)
  1. ACETYLSALICYLIC ACID({=100 MG) [Suspect]
     Dosage: 25 MG, UNK
  2. ACETYLSALICYLIC ACID({=100 MG) [Suspect]
     Dosage: 100 MG
     Route: 048

REACTIONS (5)
  - Analgesic asthma syndrome [None]
  - Urticaria [None]
  - Drug hypersensitivity [None]
  - Rash papular [Recovered/Resolved]
  - Rash maculo-papular [None]
